FAERS Safety Report 7061855-8 (Version None)
Quarter: 2010Q4

REPORT INFORMATION
  Report Type: 
  Country: None (occurrence: None)
  Receive Date: 20101026
  Receipt Date: 20101018
  Transmission Date: 20110411
  Serious: Yes (Death, Other)
  Sender: FDA-Public Use
  Company Number: DE-ROCHE-735935

PATIENT
  Age: 42 Year
  Sex: Male

DRUGS (4)
  1. BEVACIZUMAB [Suspect]
     Indication: GLIOMATOSIS CEREBRI
     Route: 065
  2. IRINOTECAN HCL [Suspect]
     Indication: GLIOMATOSIS CEREBRI
     Route: 065
  3. TEMOZOLOMIDE [Concomitant]
     Dosage: 5 DAYS EVERY 28 DAYS
  4. PROCARBAZINE [Concomitant]

REACTIONS (2)
  - CEREBRAL HAEMORRHAGE [None]
  - MALIGNANT GLIOMA [None]
